FAERS Safety Report 16537413 (Version 16)
Quarter: 2022Q4

REPORT INFORMATION
  Report Type: Report from Study
  Country: JP (occurrence: JP)
  Receive Date: 20190707
  Receipt Date: 20221215
  Transmission Date: 20230113
  Serious: Yes (Hospitalization, Other)
  Sender: FDA-Public Use
  Company Number: JP-ABBVIE-18K-087-2232775-00

PATIENT
  Age: 58 Year
  Sex: Male
  Weight: 52 kg

DRUGS (15)
  1. CARBIDOPA\LEVODOPA [Suspect]
     Active Substance: CARBIDOPA\LEVODOPA
     Indication: Parkinson^s disease
     Route: 050
     Dates: start: 20171002, end: 20180925
  2. CARBIDOPA\LEVODOPA [Suspect]
     Active Substance: CARBIDOPA\LEVODOPA
     Dosage: MD: 8 ML, CD: 2.9 ML/HR X 16 HR, ED: 1 ML/UNIT ? 1?LED WAS 1,895 MG
     Route: 050
     Dates: start: 20180926, end: 20190723
  3. CARBIDOPA\LEVODOPA [Suspect]
     Active Substance: CARBIDOPA\LEVODOPA
     Dosage: MD: 8.0 ML?CD: 2.5 ML/HR ? 16 HRS
     Route: 050
     Dates: start: 20190724
  4. ENTACAPONE [Concomitant]
     Active Substance: ENTACAPONE
     Indication: Product used for unknown indication
     Dosage: 100 UNKNOWN
  5. TRIHEXYPHENIDYL HYDROCHLORIDE [Concomitant]
     Active Substance: TRIHEXYPHENIDYL HYDROCHLORIDE
     Indication: Parkinson^s disease
     Route: 048
     Dates: end: 20190702
  6. TRIHEXYPHENIDYL HYDROCHLORIDE [Concomitant]
     Active Substance: TRIHEXYPHENIDYL HYDROCHLORIDE
     Indication: Parkinson^s disease
  7. AMANTADINE HYDROCHLORIDE [Concomitant]
     Active Substance: AMANTADINE HYDROCHLORIDE
     Indication: Parkinson^s disease
     Dosage: THE AMOUNT OF LEVODOPA CONVERTED TO 16-HOUR DOSE DURING DAYTIME WAS 2.5 MG.
     Route: 048
  8. AMANTADINE HYDROCHLORIDE [Concomitant]
     Active Substance: AMANTADINE HYDROCHLORIDE
     Indication: Parkinson^s disease
     Dosage: THE AMOUNT OF LEVODOPA CONVERTED TO 16-HOUR DOSE DURING DAYTIME WAS 300 MG.
     Route: 048
  9. AMANTADINE HYDROCHLORIDE [Concomitant]
     Active Substance: AMANTADINE HYDROCHLORIDE
     Indication: Parkinson^s disease
     Dosage: FORM STRENGTH : 50 MG
     Route: 048
  10. ROTIGOTINE [Concomitant]
     Active Substance: ROTIGOTINE
     Indication: Parkinson^s disease
     Route: 048
  11. ROTIGOTINE [Concomitant]
     Active Substance: ROTIGOTINE
     Indication: Parkinson^s disease
  12. ROTIGOTINE [Concomitant]
     Active Substance: ROTIGOTINE
     Indication: Parkinson^s disease
  13. ISTRADEFYLLINE [Concomitant]
     Active Substance: ISTRADEFYLLINE
     Indication: Parkinson^s disease
  14. ZONISAMIDE [Concomitant]
     Active Substance: ZONISAMIDE
     Indication: Parkinson^s disease
  15. RASAGILINE [Concomitant]
     Active Substance: RASAGILINE
     Indication: Parkinson^s disease

REACTIONS (9)
  - Tremor [Unknown]
  - Freezing phenomenon [Recovering/Resolving]
  - Fall [Recovering/Resolving]
  - Dyskinesia [Recovering/Resolving]
  - Foot deformity [Unknown]
  - Mobility decreased [Unknown]
  - Incorrect route of product administration [Unknown]
  - Musculoskeletal stiffness [Unknown]
  - Drug ineffective [Unknown]

NARRATIVE: CASE EVENT DATE: 20180116
